FAERS Safety Report 25365228 (Version 2)
Quarter: 2025Q2

REPORT INFORMATION
  Report Type: Spontaneous
  Country: US (occurrence: US)
  Receive Date: 20250527
  Receipt Date: 20250602
  Transmission Date: 20250717
  Serious: No
  Sender: SANOFI AVENTIS
  Company Number: US-SA-2025SA148936

PATIENT
  Sex: Male

DRUGS (2)
  1. DUPIXENT [Suspect]
     Active Substance: DUPILUMAB
     Indication: Neurodermatitis
     Route: 058
     Dates: start: 20250411, end: 20250411
  2. DUPIXENT [Suspect]
     Active Substance: DUPILUMAB
     Dosage: 300 MG, QOW
     Route: 058
     Dates: start: 20250425

REACTIONS (4)
  - Myalgia [Unknown]
  - Injection site pruritus [Unknown]
  - Arthralgia [Unknown]
  - Neurodermatitis [Not Recovered/Not Resolved]

NARRATIVE: CASE EVENT DATE: 20250101
